FAERS Safety Report 8514730-3 (Version None)
Quarter: 2012Q3

REPORT INFORMATION
  Report Type: 
  Country: None (occurrence: None)
  Receive Date: 20120717
  Receipt Date: 20120711
  Transmission Date: 20120928
  Serious: Yes (Death, Other)
  Sender: FDA-Public Use
  Company Number: JP-SANOFI-AVENTIS-2012SA049740

PATIENT
  Age: 85 Year
  Sex: Male

DRUGS (4)
  1. PROLEUKIN [Suspect]
     Indication: ANGIOSARCOMA
     Route: 065
  2. PROLEUKIN [Suspect]
     Route: 065
  3. DOCETAXEL [Suspect]
     Indication: ANGIOSARCOMA
     Route: 065
  4. DOCETAXEL [Suspect]
     Route: 065

REACTIONS (3)
  - RESPIRATORY FAILURE [None]
  - PLEURAL EFFUSION [None]
  - ASCITES [None]
